FAERS Safety Report 9501860 (Version 1)
Quarter: 2013Q1

REPORT INFORMATION
  Report Type: Spontaneous
  Country: US (occurrence: None)
  Receive Date: 20130107
  Receipt Date: 20130107
  Transmission Date: 20140127
  Serious: No
  Sender: FDA-Public Use
  Company Number: PHEH2012US018379

PATIENT
  Age: 55 Year
  Sex: Female

DRUGS (1)
  1. GILENYA (FTY) CAPSULE [Suspect]
     Indication: MULTIPLE SCLEROSIS
     Route: 048
     Dates: start: 20120820

REACTIONS (5)
  - Palpitations [None]
  - Sinus arrest [None]
  - Influenza like illness [None]
  - Back pain [None]
  - Pain [None]
